FAERS Safety Report 10255151 (Version 1)
Quarter: 2014Q2

REPORT INFORMATION
  Report Type: Spontaneous
  Country: US (occurrence: US)
  Receive Date: 20140624
  Receipt Date: 20140624
  Transmission Date: 20141212
  Serious: No
  Sender: FDA-Public Use
  Company Number: US-PFIZER INC-2014168713

PATIENT
  Sex: 0

DRUGS (1)
  1. ZOLOFT [Suspect]
     Indication: ANXIETY
     Dosage: UNK

REACTIONS (5)
  - Eye pain [Unknown]
  - Dry skin [Unknown]
  - Libido decreased [Unknown]
  - Weight increased [Unknown]
  - Drug ineffective for unapproved indication [Unknown]
